FAERS Safety Report 17220278 (Version 6)
Quarter: 2021Q4

REPORT INFORMATION
  Report Type: Spontaneous
  Country: US (occurrence: US)
  Receive Date: 20191231
  Receipt Date: 20211019
  Transmission Date: 20220303
  Serious: Yes (Other)
  Sender: FDA-Public Use
  Company Number: US-GILEAD-2019-0444912

PATIENT
  Age: 39 Year
  Sex: Male
  Weight: 108.84 kg

DRUGS (47)
  1. VIREAD [Suspect]
     Active Substance: TENOFOVIR DISOPROXIL FUMARATE
     Indication: HIV infection
     Dosage: UNK
     Route: 048
     Dates: start: 2001
  2. VIREAD [Suspect]
     Active Substance: TENOFOVIR DISOPROXIL FUMARATE
     Dosage: UNK
     Route: 048
     Dates: start: 2012, end: 202007
  3. ACETAMINOPHEN [Concomitant]
     Active Substance: ACETAMINOPHEN
  4. ACETAMINOPHEN\ASCORBIC ACID [Concomitant]
     Active Substance: ACETAMINOPHEN\ASCORBIC ACID
  5. BACTRIM [Concomitant]
     Active Substance: SULFAMETHOXAZOLE\TRIMETHOPRIM
  6. CORTISONE [Concomitant]
     Active Substance: CORTISONE
  7. FLEET LAXATIVE [Concomitant]
  8. FLOMAX [Concomitant]
     Active Substance: TAMSULOSIN HYDROCHLORIDE
  9. PRAVASTATIN [Concomitant]
     Active Substance: PRAVASTATIN
  10. PREDNISOLONE [Concomitant]
     Active Substance: PREDNISOLONE
  11. NORVIR [Concomitant]
     Active Substance: RITONAVIR
  12. PREZISTA [Concomitant]
     Active Substance: DARUNAVIR ETHANOLATE
  13. SUSTIVA [Concomitant]
     Active Substance: EFAVIRENZ
  14. TIVICAY [Concomitant]
     Active Substance: DOLUTEGRAVIR SODIUM
  15. AMOXICILLIN [Concomitant]
     Active Substance: AMOXICILLIN
  16. COZAAR [Concomitant]
     Active Substance: LOSARTAN POTASSIUM
  17. COREG [Concomitant]
     Active Substance: CARVEDILOL
  18. APRESOLINE HYDROCHLORIDE [Concomitant]
     Active Substance: HYDRALAZINE HYDROCHLORIDE
  19. ZAROXOLYN [Concomitant]
     Active Substance: METOLAZONE
  20. IBUPROFEN [Concomitant]
     Active Substance: IBUPROFEN
  21. FUROSEMIDE [Concomitant]
     Active Substance: FUROSEMIDE
  22. TORSEMIDE [Concomitant]
     Active Substance: TORSEMIDE
  23. AZITHROMYCIN ANHYDROUS [Concomitant]
     Active Substance: AZITHROMYCIN ANHYDROUS
  24. LOSARTAN [Concomitant]
     Active Substance: LOSARTAN
  25. SEVELAMER CARBONATE [Concomitant]
     Active Substance: SEVELAMER CARBONATE
  26. METOLAZONE [Concomitant]
     Active Substance: METOLAZONE
  27. VALACYCLOVIR HYDROCHLORIDE [Concomitant]
     Active Substance: VALACYCLOVIR HYDROCHLORIDE
  28. CYCLOPENTOLATE [Concomitant]
     Active Substance: CYCLOPENTOLATE
  29. AMLODIPINE BESYLATE [Concomitant]
     Active Substance: AMLODIPINE BESYLATE
  30. GENTAMICIN [Concomitant]
     Active Substance: GENTAMICIN
  31. CIPROFLOXACIN [Concomitant]
     Active Substance: CIPROFLOXACIN
  32. CLONAZEPAM [Concomitant]
     Active Substance: CLONAZEPAM
  33. ROZEREM [Concomitant]
     Active Substance: RAMELTEON
  34. LABETALOL [Concomitant]
     Active Substance: LABETALOL\LABETALOL HYDROCHLORIDE
  35. CARVEDILOL [Concomitant]
     Active Substance: CARVEDILOL
  36. ISOSORBIDE MONONITRATE [Concomitant]
     Active Substance: ISOSORBIDE MONONITRATE
  37. HYDRALAZINE [Concomitant]
     Active Substance: HYDRALAZINE HYDROCHLORIDE
  38. CELECOXIB [Concomitant]
     Active Substance: CELECOXIB
  39. NAPROXEN [Concomitant]
     Active Substance: NAPROXEN
  40. TAMSULOSIN [Concomitant]
     Active Substance: TAMSULOSIN
  41. ARANESP [Concomitant]
     Active Substance: DARBEPOETIN ALFA
  42. LEVOFLOXACIN [Concomitant]
     Active Substance: LEVOFLOXACIN
  43. CLARITHROMYCIN [Concomitant]
     Active Substance: CLARITHROMYCIN
  44. CALCIUM CARBONATE\MAGNESIUM CARBONATE [Concomitant]
     Active Substance: CALCIUM CARBONATE\MAGNESIUM CARBONATE
  45. RETROVIR [Concomitant]
     Active Substance: ZIDOVUDINE
  46. TYLENOL [Concomitant]
     Active Substance: ACETAMINOPHEN
  47. GAVILYTE G [Concomitant]
     Active Substance: POLYETHYLENE GLYCOL 3350\POTASSIUM CHLORIDE\SODIUM BICARBONATE\SODIUM CHLORIDE\SODIUM SULFATE

REACTIONS (11)
  - End stage renal disease [Not Recovered/Not Resolved]
  - Chronic kidney disease [Unknown]
  - Renal failure [Not Recovered/Not Resolved]
  - Emotional distress [Not Recovered/Not Resolved]
  - Economic problem [Not Recovered/Not Resolved]
  - Anxiety [Not Recovered/Not Resolved]
  - Pain [Not Recovered/Not Resolved]
  - Anhedonia [Not Recovered/Not Resolved]
  - Renal disorder [Unknown]
  - Spinal osteoarthritis [Unknown]
  - Fatigue [Unknown]

NARRATIVE: CASE EVENT DATE: 20160101
